FAERS Safety Report 6248742-X (Version None)
Quarter: 2009Q2

REPORT INFORMATION
  Report Type: 
  Country: None (occurrence: None)
  Receive Date: 20090629
  Receipt Date: 20090616
  Transmission Date: 20091009
  Serious: Yes (Other)
  Sender: FDA-Public Use
  Company Number: PHHY2009CA24483

PATIENT

DRUGS (3)
  1. DIOVAN T30230++HY [Suspect]
     Dosage: 320 MG, QD
  2. DIURETICS [Concomitant]
     Indication: HYPERTENSION
  3. BETA BLOCKING AGENTS [Concomitant]
     Indication: HYPERTENSION

REACTIONS (2)
  - BLOOD PRESSURE INADEQUATELY CONTROLLED [None]
  - URINE ALBUMIN/CREATININE RATIO INCREASED [None]
